FAERS Safety Report 5968928-9 (Version None)
Quarter: 2008Q4

REPORT INFORMATION
  Report Type: 
  Country: None (occurrence: None)
  Receive Date: 20081126
  Receipt Date: 20081114
  Transmission Date: 20090506
  Serious: Yes (Hospitalization)
  Sender: FDA-Public Use
  Company Number: JP-JNJCH-2007023999

PATIENT
  Age: 37 Year
  Sex: Female

DRUGS (6)
  1. CETIRIZINE HYDROCHLORIDE [Suspect]
     Indication: PRURITUS
     Dosage: TEXT:10 MG
     Route: 048
     Dates: start: 20070228, end: 20070319
  2. PREDNISOLONE [Concomitant]
     Indication: PEMPHIGUS
     Route: 048
     Dates: start: 20070201, end: 20070319
  3. PREDNISOLONE [Concomitant]
     Dosage: TEXT:50 MG
     Route: 048
  4. ALENDRONIC ACID [Concomitant]
     Indication: OSTEOPOROSIS
     Dosage: TEXT:5 MG
     Route: 048
     Dates: start: 20070201, end: 20070319
  5. RANITIDINE HYDROCHLORIDE [Concomitant]
     Indication: GASTRITIS
     Dosage: TEXT:300 MG
     Route: 048
     Dates: start: 20070315, end: 20070319
  6. RANITIDINE HYDROCHLORIDE [Concomitant]
     Dosage: TEXT:100 MG
     Route: 048

REACTIONS (3)
  - LIVER DISORDER [None]
  - PLATELET COUNT DECREASED [None]
  - WHITE BLOOD CELL COUNT DECREASED [None]
